FAERS Safety Report 19615543 (Version 2)
Quarter: 2021Q3

REPORT INFORMATION
  Report Type: Report from Study
  Country: US (occurrence: US)
  Receive Date: 20210727
  Receipt Date: 20210819
  Transmission Date: 20211014
  Serious: Yes (Hospitalization, Other)
  Sender: FDA-Public Use
  Company Number: US-BAYER-2021-145528

PATIENT
  Age: 65 Year
  Sex: Male

DRUGS (4)
  1. STIVARGA [Suspect]
     Active Substance: REGORAFENIB
     Indication: COLORECTAL CANCER
     Dosage: 160 MG DAILY FOR 21 DAYS OF 28 DAY CYCLE
     Route: 048
     Dates: start: 20210519, end: 20210701
  2. MORPHINE [Concomitant]
     Active Substance: MORPHINE
     Dosage: UNK
  3. STIVARGA [Suspect]
     Active Substance: REGORAFENIB
     Indication: COLORECTAL CANCER
     Dosage: 80 MG DAILY FOR 21 DAYS ON/7 DAYS OFF
     Route: 048
     Dates: start: 20210720
  4. MORPHINE [Concomitant]
     Active Substance: MORPHINE
     Dosage: INCREASED TO 30 MG

REACTIONS (23)
  - Vomiting [Recovering/Resolving]
  - Hypotension [Recovered/Resolved]
  - Decreased appetite [Not Recovered/Not Resolved]
  - Diarrhoea [Not Recovered/Not Resolved]
  - Therapeutic response unexpected [Recovering/Resolving]
  - Pruritus [Not Recovered/Not Resolved]
  - Blood magnesium decreased [Recovered/Resolved]
  - Burning sensation [Not Recovered/Not Resolved]
  - Night sweats [Recovered/Resolved]
  - Exercise tolerance decreased [Not Recovered/Not Resolved]
  - Diarrhoea [Recovered/Resolved]
  - Taste disorder [Not Recovered/Not Resolved]
  - Haematochezia [Recovering/Resolving]
  - Pain [Not Recovered/Not Resolved]
  - Weight decreased [Not Recovered/Not Resolved]
  - Chest pain [Not Recovered/Not Resolved]
  - Dysphonia [Not Recovered/Not Resolved]
  - Illness [Unknown]
  - Skin erosion [Not Recovered/Not Resolved]
  - Speech disorder [Not Recovered/Not Resolved]
  - Dehydration [Recovered/Resolved]
  - Fatigue [Recovering/Resolving]
  - Dysphonia [Not Recovered/Not Resolved]

NARRATIVE: CASE EVENT DATE: 202105
